FAERS Safety Report 8078092-0 (Version None)
Quarter: 2012Q1

REPORT INFORMATION
  Report Type: 
  Country: None (occurrence: None)
  Receive Date: 20120127
  Receipt Date: 20110107
  Transmission Date: 20120608
  Serious: No
  Sender: FDA-Public Use
  Company Number: US-ABBOTT-11P-163-0696149-00

PATIENT
  Sex: Female
  Weight: 56.75 kg

DRUGS (4)
  1. LEVOTHYROXINE SODIUM [Concomitant]
     Indication: HYPOTHYROIDISM
  2. HUMIRA [Suspect]
     Indication: RHEUMATOID ARTHRITIS
     Dosage: ONCE
     Dates: start: 20101001, end: 20101001
  3. IMURAN [Concomitant]
     Indication: RHEUMATOID ARTHRITIS
     Dates: start: 20100101
  4. IBUPROFEN [Concomitant]
     Indication: PRODUCT USED FOR UNKNOWN INDICATION

REACTIONS (1)
  - SUBCUTANEOUS ABSCESS [None]
